FAERS Safety Report 9154047 (Version 1)
Quarter: 2013Q1

REPORT INFORMATION
  Report Type: Spontaneous
  Country: US (occurrence: US)
  Receive Date: 20130311
  Receipt Date: 20130311
  Transmission Date: 20140127
  Serious: No
  Sender: FDA-Public Use
  Company Number: US-PFIZER INC-2013080954

PATIENT
  Age: 48 Year
  Sex: Female
  Weight: 122.45 kg

DRUGS (3)
  1. METHOTREXATE SODIUM [Suspect]
     Dosage: UNK
  2. SULFASALAZINE [Suspect]
     Dosage: UNK MG, UNK
  3. CODEINE [Suspect]
     Dosage: UNK

REACTIONS (1)
  - Drug hypersensitivity [Unknown]
